FAERS Safety Report 7312782-X (Version None)
Quarter: 2011Q1

REPORT INFORMATION
  Report Type: 
  Country: None (occurrence: None)
  Receive Date: 20110224
  Receipt Date: 20100121
  Transmission Date: 20110831
  Serious: Yes (Other)
  Sender: FDA-Public Use
  Company Number: US-MYLANLABS-2010S1001248

PATIENT
  Age: 50 Year
  Sex: Male

DRUGS (7)
  1. LISINOPRIL AND HYDROCHLOROTHIAZIDE [Suspect]
     Indication: BLOOD PRESSURE INCREASED
  2. CLONIDINE [Suspect]
     Indication: BLOOD PRESSURE INCREASED
     Route: 062
  3. AMLODIPINE BESYLATE [Suspect]
     Indication: BLOOD PRESSURE INCREASED
     Route: 048
     Dates: start: 20091101
  4. CARVEDILOL [Suspect]
     Indication: BLOOD PRESSURE INCREASED
  5. HYDRALAZINE HCL [Suspect]
     Indication: BLOOD PRESSURE INCREASED
  6. METOPROLOL TARTRATE [Suspect]
     Indication: BLOOD PRESSURE INCREASED
     Route: 048
     Dates: start: 20091101
  7. SIMVASTATIN [Concomitant]

REACTIONS (2)
  - DRUG INEFFECTIVE [None]
  - BLOOD PRESSURE INCREASED [None]
